FAERS Safety Report 8803866 (Version 1)
Quarter: 2012Q4

REPORT INFORMATION
  Report Type: Report from Study
  Country: BE (occurrence: BE)
  Receive Date: 20120924
  Receipt Date: 20120924
  Transmission Date: 20130627
  Serious: Yes (Hospitalization)
  Sender: FDA-Public Use
  Company Number: PHHO2012BE013700

PATIENT
  Sex: Male

DRUGS (1)
  1. EVEROLIMUS [Suspect]
     Indication: RENAL TRANSPLANT

REACTIONS (2)
  - Lung disorder [Recovered/Resolved]
  - Cytomegalovirus infection [Recovering/Resolving]
